FAERS Safety Report 9379534 (Version 3)
Quarter: 2014Q2

REPORT INFORMATION
  Report Type: Spontaneous
  Country: US (occurrence: US)
  Receive Date: 20130702
  Receipt Date: 20140527
  Transmission Date: 20141212
  Serious: Yes (Other)
  Sender: FDA-Public Use
  Company Number: US-UCBSA-090107

PATIENT
  Age: 35 Year
  Sex: Male

DRUGS (2)
  1. CIMZIA [Suspect]
     Indication: RHEUMATOID ARTHRITIS
     Dates: end: 201010
  2. PREDNISONE [Concomitant]

REACTIONS (4)
  - Intervertebral disc operation [Recovered/Resolved]
  - Road traffic accident [Recovered/Resolved]
  - Neck surgery [Recovered/Resolved]
  - Neck pain [Not Recovered/Not Resolved]
